FAERS Safety Report 12868832 (Version 1)
Quarter: 2016Q4

REPORT INFORMATION
  Report Type: Spontaneous
  Country: GB (occurrence: GB)
  Receive Date: 20161021
  Receipt Date: 20161021
  Transmission Date: 20170207
  Serious: Yes (Other)
  Sender: FDA-Public Use
  Company Number: GB-009507513-1610GBR009856

PATIENT
  Age: 9 Year
  Sex: Male

DRUGS (6)
  1. ALBUTEROL SULFATE. [Concomitant]
     Active Substance: ALBUTEROL SULFATE
  2. MONTELUKAST SODIUM. [Suspect]
     Active Substance: MONTELUKAST SODIUM
     Indication: ASTHMA
     Dosage: 5 MG, UNK
     Route: 048
     Dates: start: 20080301, end: 20111101
  3. EPIPEN [Concomitant]
     Active Substance: EPINEPHRINE
     Dosage: UNK
  4. PIRITON [Concomitant]
     Active Substance: CHLORPHENIRAMINE MALEATE
     Dosage: UNK
  5. CLENIL MODULITE [Concomitant]
     Active Substance: BECLOMETHASONE DIPROPIONATE
     Dosage: UNK
  6. CETIRIZINE HYDROCHLORIDE. [Concomitant]
     Active Substance: CETIRIZINE HYDROCHLORIDE
     Dosage: UNK

REACTIONS (11)
  - Self esteem decreased [Recovering/Resolving]
  - Sleep terror [Recovered/Resolved with Sequelae]
  - Epistaxis [Recovered/Resolved]
  - Defiant behaviour [Recovered/Resolved]
  - Tremor [Recovered/Resolved]
  - Anxiety [Recovering/Resolving]
  - Crying [Recovered/Resolved]
  - Suicidal ideation [Recovered/Resolved]
  - Disturbance in attention [Recovered/Resolved with Sequelae]
  - Pain in extremity [Recovered/Resolved]
  - Anger [Recovering/Resolving]
